FAERS Safety Report 17274496 (Version 2)
Quarter: 2020Q1

REPORT INFORMATION
  Report Type: Spontaneous
  Country: US (occurrence: US)
  Receive Date: 20200115
  Receipt Date: 20200224
  Transmission Date: 20200409
  Serious: No
  Sender: FDA-Public Use
  Company Number: US-SA-2020SA007224

PATIENT
  Sex: Female

DRUGS (5)
  1. NERLYNX [Concomitant]
     Active Substance: NERATINIB
     Dosage: 3 DF, QD
     Dates: start: 20200101
  2. MAGNESIUM OXIDE. [Concomitant]
     Active Substance: MAGNESIUM OXIDE
     Indication: SUPPLEMENTATION THERAPY
     Dosage: 100 % POWDER
  3. POTASSIUM GLUCONATE [Concomitant]
     Active Substance: POTASSIUM GLUCONATE
     Indication: SUPPLEMENTATION THERAPY
  4. AUBAGIO [Suspect]
     Active Substance: TERIFLUNOMIDE
     Indication: MULTIPLE SCLEROSIS
     Dosage: 14 MG, QD
     Route: 048
  5. BIOTIN [Concomitant]
     Active Substance: BIOTIN
     Dosage: 100% POWDER

REACTIONS (4)
  - Hepatic enzyme increased [Unknown]
  - Rash [Unknown]
  - Fatigue [Unknown]
  - Diarrhoea [Recovered/Resolved]
